FAERS Safety Report 11379269 (Version 1)
Quarter: 2015Q3

REPORT INFORMATION
  Report Type: Spontaneous
  Country: US (occurrence: US)
  Receive Date: 20150811
  Receipt Date: 20150811
  Transmission Date: 20151125
  Serious: No
  Sender: FDA-Public Use
  Company Number: US-ELI_LILLY_AND_COMPANY-US200905004418

PATIENT
  Sex: Male

DRUGS (4)
  1. CIALIS [Suspect]
     Active Substance: TADALAFIL
     Indication: ERECTILE DYSFUNCTION
     Dosage: 5 MG, AS NEEDED
     Route: 065
     Dates: start: 2006
  2. CIALIS [Suspect]
     Active Substance: TADALAFIL
     Dosage: 5 MG, PRN
  3. PREVPAC /01453101/ [Concomitant]
     Dosage: UNK, 2/D
     Route: 065
     Dates: start: 200905, end: 20090520
  4. CIALIS [Suspect]
     Active Substance: TADALAFIL
     Dosage: 5 MG, QD

REACTIONS (7)
  - Skin infection [Unknown]
  - Inhibitory drug interaction [Recovered/Resolved]
  - Therapeutic response prolonged [Recovered/Resolved]
  - Therapeutic response decreased [Recovered/Resolved]
  - Drug ineffective [Unknown]
  - Headache [Unknown]
  - Nasal congestion [Unknown]
